FAERS Safety Report 8491465-7 (Version None)
Quarter: 2012Q3

REPORT INFORMATION
  Report Type: 
  Country: None (occurrence: None)
  Receive Date: 20120706
  Receipt Date: 20120629
  Transmission Date: 20120928
  Serious: Yes (Other)
  Sender: FDA-Public Use
  Company Number: JP-PFIZER INC-2012158494

PATIENT
  Age: 81 Year
  Sex: Male

DRUGS (3)
  1. LYRICA [Suspect]
     Indication: POST HERPETIC NEURALGIA
     Dosage: 50 MG IN THE MORNING AND 75 MG IN THE EVENING, DAILY
     Route: 048
     Dates: start: 20120609, end: 20120618
  2. LYRICA [Suspect]
     Dosage: 50 MG IN THE MORNING AND 75 MG IN THE EVENING, DAILY
     Route: 048
     Dates: start: 20120625, end: 20120627
  3. LYRICA [Suspect]
     Dosage: 75 MG IN THE MORNING AND 150 MG IN THE EVENING, DAILY
     Route: 048
     Dates: start: 20120619, end: 20120621

REACTIONS (1)
  - CONVULSION [None]
